FAERS Safety Report 6724361-3 (Version None)
Quarter: 2010Q2

REPORT INFORMATION
  Report Type: 
  Country: None (occurrence: None)
  Receive Date: 20100513
  Receipt Date: 20100506
  Transmission Date: 20101027
  Serious: Yes (Other)
  Sender: FDA-Public Use
  Company Number: US-NAPPMUNDI-USA-2010-0043191

PATIENT
  Sex: Male

DRUGS (1)
  1. OXYCONTIN [Suspect]
     Indication: PAIN
     Dosage: 60 MG, TID
     Route: 055

REACTIONS (4)
  - INTENTIONAL DRUG MISUSE [None]
  - MENTAL DISORDER [None]
  - OVERDOSE [None]
  - SUICIDAL IDEATION [None]
